FAERS Safety Report 4399162-4 (Version None)
Quarter: 2004Q3

REPORT INFORMATION
  Report Type: 
  Country: None (occurrence: None)
  Receive Date: 20040716
  Receipt Date: 20040705
  Transmission Date: 20050211
  Serious: Yes (Hospitalization)
  Sender: FDA-Public Use
  Company Number: FR-BRISTOL-MYERS SQUIBB COMPANY-12632477

PATIENT
  Age: 40 Year
  Sex: Male

DRUGS (3)
  1. VIDEX EC [Suspect]
     Indication: HIV INFECTION
     Route: 048
     Dates: start: 20031105, end: 20031208
  2. ZIAGEN [Suspect]
     Indication: HIV INFECTION
     Route: 048
     Dates: start: 20031105, end: 20031208
  3. VIRACEPT [Suspect]
     Indication: HIV INFECTION
     Dosage: THERAPY INTERRUPTED DUE TO THE EVENT, SUBSEQUENTLY RESTARTED
     Route: 048
     Dates: start: 20031105

REACTIONS (3)
  - CONJUNCTIVAL HAEMORRHAGE [None]
  - HEPATITIS [None]
  - JAUNDICE [None]
